FAERS Safety Report 15966496 (Version 9)
Quarter: 2019Q3

REPORT INFORMATION
  Report Type: Spontaneous
  Country: US (occurrence: US)
  Receive Date: 20190215
  Receipt Date: 20190904
  Transmission Date: 20191004
  Serious: Yes (Hospitalization, Other)
  Sender: FDA-Public Use
  Company Number: US-PFIZER INC-2019067228

PATIENT
  Age: 77 Year
  Sex: Female

DRUGS (3)
  1. IBRANCE [Suspect]
     Active Substance: PALBOCICLIB
     Indication: BREAST CANCER METASTATIC
     Dosage: 125 MG, CYCLIC (1 PER DAY 21 DAYS)
     Dates: start: 20190116
  2. OXYGEN. [Concomitant]
     Active Substance: OXYGEN
     Dosage: UNK (2-4 L)
     Dates: start: 20190212
  3. LETROZOLE. [Concomitant]
     Active Substance: LETROZOLE
     Dosage: 2.5 MG, 1X/DAY
     Dates: start: 201901

REACTIONS (10)
  - White blood cell count decreased [Not Recovered/Not Resolved]
  - Interstitial lung disease [Unknown]
  - Full blood count decreased [Unknown]
  - Cardiac failure congestive [Unknown]
  - Atypical pneumonia [Recovered/Resolved]
  - Red blood cell count decreased [Not Recovered/Not Resolved]
  - Gastric haemorrhage [Not Recovered/Not Resolved]
  - Dyspnoea [Not Recovered/Not Resolved]
  - Kidney infection [Recovered/Resolved]
  - White blood cell count increased [Unknown]

NARRATIVE: CASE EVENT DATE: 2019
